FAERS Safety Report 18459686 (Version 2)
Quarter: 2021Q1

REPORT INFORMATION
  Report Type: Report from Study
  Country: None (occurrence: US)
  Receive Date: 20201104
  Receipt Date: 20210129
  Transmission Date: 20210419
  Serious: Yes (Death, Other)
  Sender: FDA-Public Use
  Company Number: US-ABBVIE-20K-163-3634804-00

PATIENT
  Sex: Male
  Weight: 67.19 kg

DRUGS (2)
  1. CREON [Suspect]
     Active Substance: PANCRELIPASE AMYLASE\PANCRELIPASE LIPASE\PANCRELIPASE PROTEASE
     Route: 048
  2. CREON [Suspect]
     Active Substance: PANCRELIPASE AMYLASE\PANCRELIPASE LIPASE\PANCRELIPASE PROTEASE
     Indication: PANCREATIC CARCINOMA
     Dosage: 2 CAPSULES WITH MEAL AND 1 CAPSULE PER SNACK
     Route: 048
     Dates: start: 20200801, end: 20201007

REACTIONS (1)
  - Pancreatic carcinoma stage IV [Fatal]

NARRATIVE: CASE EVENT DATE: 2020
